FAERS Safety Report 4428101-2 (Version None)
Quarter: 2004Q3

REPORT INFORMATION
  Report Type: 
  Country: None (occurrence: None)
  Receive Date: 20040813
  Receipt Date: 20040730
  Transmission Date: 20050211
  Serious: Yes (Hospitalization)
  Sender: FDA-Public Use
  Company Number: 2004US000920

PATIENT
  Age: 40 Year
  Sex: Male

DRUGS (4)
  1. PROGRAF [Suspect]
     Indication: PANCREAS TRANSPLANT
  2. PROGRAF [Suspect]
     Indication: RENAL TRANSPLANT
  3. MYCOPHENOLATE MOFETIL (MYCOPHENOLATE MOFETIL) [Suspect]
     Indication: IMMUNOSUPPRESSION
     Dosage: 2.00 G, UID/QD
  4. PREDNISONE TAB [Suspect]
     Indication: IMMUNOSUPPRESSION

REACTIONS (9)
  - COMPLICATIONS OF TRANSPLANT SURGERY [None]
  - DIALYSIS [None]
  - GRAFT LOSS [None]
  - KIDNEY TRANSPLANT REJECTION [None]
  - POLYOMAVIRUS INTERSTITIAL NEPHRITIS [None]
  - RENAL FAILURE [None]
  - RENAL TRANSPLANT [None]
  - SURGICAL PROCEDURE REPEATED [None]
  - THERAPY NON-RESPONDER [None]
